FAERS Safety Report 4346719-2 (Version None)
Quarter: 2004Q1

REPORT INFORMATION
  Report Type: 
  Country: None (occurrence: None)
  Receive Date: 20040329
  Receipt Date: 20031203
  Transmission Date: 20041129
  Serious: No
  Sender: FDA-Public Use
  Company Number: USA031253890

PATIENT
  Sex: Male

DRUGS (4)
  1. STRATTERA [Suspect]
     Indication: ATTENTION DEFICIT/HYPERACTIVITY DISORDER
     Dosage: 25 MG/DAY
     Dates: start: 20031201, end: 20031203
  2. ZOLOFT [Concomitant]
  3. HYTRIN [Concomitant]
  4. PRILOSEC [Concomitant]

REACTIONS (1)
  - DYSURIA [None]
